FAERS Safety Report 5048469-6 (Version None)
Quarter: 2006Q3

REPORT INFORMATION
  Report Type: 
  Country: None (occurrence: None)
  Receive Date: 20060712
  Receipt Date: 20060703
  Transmission Date: 20061208
  Serious: Yes (Death, Hospitalization, Other)
  Sender: FDA-Public Use
  Company Number: GB-JNJFOC-20060505952

PATIENT
  Sex: Female
  Weight: 73 kg

DRUGS (8)
  1. REMICADE [Suspect]
     Indication: RHEUMATOID ARTHRITIS
     Route: 042
  2. METHOTREXATE [Concomitant]
     Route: 065
  3. ACETAMINOPHEN W/ CODEINE [Concomitant]
     Route: 065
  4. FERROUS SULFATE TAB [Concomitant]
     Route: 065
  5. FOLIC ACID [Concomitant]
     Route: 065
  6. IBUPROFEN [Concomitant]
     Route: 065
  7. LANSOPRAZOL [Concomitant]
     Route: 065
  8. OXYBUTANIN [Concomitant]
     Route: 065

REACTIONS (2)
  - COLON NEOPLASM [None]
  - PNEUMONIA [None]
